FAERS Safety Report 8691313 (Version 2)
Quarter: 2012Q4

REPORT INFORMATION
  Report Type: 
  Country: GB (occurrence: GB)
  Receive Date: 20120730
  Receipt Date: 20120910
  Transmission Date: 20130627
  Serious: Yes (Other)
  Sender: FDA-Public Use
  Company Number: PHFR2012GB004170

PATIENT
  Age: 46 None
  Sex: Male

DRUGS (7)
  1. CLOZARIL [Suspect]
     Dosage: 850 mg, QD
     Route: 048
     Dates: start: 201206
  2. CLOZARIL [Suspect]
     Dosage: 800 mg, UNK
     Route: 048
  3. RISPERIDONE [Concomitant]
     Indication: PSYCHOTIC DISORDER
     Dosage: 8 mg, UNK
  4. FERROUS SULPHATE [Concomitant]
     Indication: ANAEMIA
     Dosage: 400 mg, UNK
  5. DOCUSATE SODIUM [Concomitant]
     Indication: CONSTIPATION
     Dosage: 400 mg, UNK
  6. PREDNISOLONE [Concomitant]
  7. CLOZARIL [Suspect]
     Indication: SCHIZOPHRENIA
     Route: 048
     Dates: start: 20010701

REACTIONS (7)
  - Fracture [Unknown]
  - Petit mal epilepsy [Recovered/Resolved]
  - Pneumonia [Unknown]
  - Heart rate increased [Recovered/Resolved]
  - Anaemia [Unknown]
  - Antipsychotic drug level increased [Unknown]
  - Tachycardia [None]
